FAERS Safety Report 20168321 (Version 1)
Quarter: 2021Q4

REPORT INFORMATION
  Report Type: Spontaneous
  Country: PT (occurrence: PT)
  Receive Date: 20211210
  Receipt Date: 20211210
  Transmission Date: 20220303
  Serious: Yes (Hospitalization, Other)
  Sender: FDA-Public Use
  Company Number: PT-BAYER-2021A256809

PATIENT
  Age: 50 Year
  Sex: Male

DRUGS (1)
  1. CIPROFLOXACIN [Suspect]
     Active Substance: CIPROFLOXACIN
     Indication: Gastroenteritis
     Dosage: UNK
     Route: 065

REACTIONS (4)
  - Acute kidney injury [Unknown]
  - Meningitis bacterial [Recovering/Resolving]
  - Hyponatraemia [Unknown]
  - Anaemia [Unknown]
